FAERS Safety Report 9886614 (Version 1)
Quarter: 2014Q1

REPORT INFORMATION
  Report Type: Spontaneous
  Country: TH (occurrence: TH)
  Receive Date: 20140210
  Receipt Date: 20140210
  Transmission Date: 20141002
  Serious: Yes (Life-Threatening, Hospitalization, Other)
  Sender: FDA-Public Use
  Company Number: TH-WATSON-2014-01922

PATIENT
  Age: 42 Year
  Sex: Female

DRUGS (4)
  1. METHOTREXATE (UNKNOWN) [Suspect]
     Indication: ECTOPIC PREGNANCY
     Dosage: 50 MG/M2, 4 DOSAGES
     Route: 030
  2. METHOTREXATE (UNKNOWN) [Suspect]
     Indication: OFF LABEL USE
  3. POTASSIUM CHLORIDE EXTENDED-RELEASE (WATSON LABORATORIES) [Suspect]
     Indication: ECTOPIC PREGNANCY
     Dosage: UNK
     Route: 065
  4. POTASSIUM CHLORIDE EXTENDED-RELEASE (WATSON LABORATORIES) [Suspect]
     Indication: OFF LABEL USE

REACTIONS (7)
  - Vaginal haemorrhage [Recovered/Resolved]
  - Hypovolaemic shock [Recovered/Resolved]
  - Disseminated intravascular coagulation [Recovered/Resolved]
  - Off label use [Recovered/Resolved]
  - Renal tubular necrosis [Recovered/Resolved]
  - Gastritis [Recovered/Resolved]
  - Nausea [Recovered/Resolved]
